FAERS Safety Report 9841942 (Version 1)
Quarter: 2013Q4

REPORT INFORMATION
  Report Type: Spontaneous
  Country: US (occurrence: None)
  Receive Date: 20131219
  Receipt Date: 20131219
  Transmission Date: 20140711
  Serious: Yes (Death, Disabling, Other)
  Sender: FDA-Public Use
  Company Number: 163-20785-12123109

PATIENT
  Age: 62 Year
  Sex: Male

DRUGS (18)
  1. THALOMID (THALIDOMIDE) (CAPSULES) [Suspect]
     Indication: PLASMA CELL MYELOMA
     Dosage: 50 MG, 1 IN 1 D, PO
     Route: 048
     Dates: start: 20120222, end: 20120409
  2. VELCADE (BORTEZOMIB) (UNKNOWN) [Concomitant]
  3. CYTOXAN (CYCLOPHOSPHAMIDE) (UNKNOWN) [Concomitant]
  4. DEXAMETHASONE (DEXAMETHASONE) (UNKNOWN) [Concomitant]
  5. BACTRIM DS (BACTRIM) (TABLETS) [Concomitant]
  6. ASPIRIN (ACETYLSALICYLIC ACID)  (TABLETS) [Concomitant]
  7. OMEPRAZOLE (OMEPRAZOLE ) (CAPSULES) [Concomitant]
  8. DIPHENHYD-LIDOCAINE-NYSTATIN (DIPHENHYDRAMINE HCL W/LIDOCAINE/ NYSTATIN) (SUSPENSION)? [Concomitant]
  9. ACYCLOVIR (ACICLOVIR) (TABLETS) [Concomitant]
  10. PROMETHAZINE (PROMETHAZINE) (TABLETS) [Concomitant]
  11. LISINOPRIL (LISINOPRIL) (TABLETS) [Concomitant]
  12. ESZOPILONE (ESZOPICLONE) (TABLETS) [Concomitant]
  13. DIPHENOXYLATE/ATROPINE (LOMOTIL) (TABLETS) [Concomitant]
  14. MELPHALAN (MELPHALAN) (2 MILLIGRAM, TABLETS) [Concomitant]
  15. PREDNISONE (PREDNISONE) (10 MILLIGRAM, TABLETS) [Concomitant]
  16. MUPIROCIN (MUPIROCIN) (OINTMENT) [Concomitant]
  17. TRIAMCINOLONE (TRIAMCINOLONE) (CREAM) [Concomitant]
  18. HYDROCODONE/ACETAMINOPHEN (REMEDEINE) (TABLETS) [Concomitant]

REACTIONS (3)
  - Plasma cell myeloma [None]
  - Anaemia [None]
  - Urticaria [None]
